FAERS Safety Report 6938448-3 (Version None)
Quarter: 2010Q3

REPORT INFORMATION
  Report Type: 
  Country: None (occurrence: None)
  Receive Date: 20100824
  Receipt Date: 20100813
  Transmission Date: 20110219
  Serious: Yes (Death, Hospitalization)
  Sender: FDA-Public Use
  Company Number: CA-ELI_LILLY_AND_COMPANY-CA201008004733

PATIENT
  Age: 80 Year
  Sex: Female

DRUGS (11)
  1. FORTEO [Suspect]
     Indication: OSTEOPOROSIS
     Dosage: 20 UG, DAILY (1/D)
     Route: 058
     Dates: start: 20100218
  2. TYLENOL (CAPLET) [Concomitant]
  3. LYRICA [Concomitant]
  4. COLACE [Concomitant]
  5. AMLODIPINE [Concomitant]
  6. INDERAL [Concomitant]
  7. NEXIUM [Concomitant]
  8. LASIX [Concomitant]
  9. VITAMIN D [Concomitant]
  10. CALCIUM [Concomitant]
  11. SYNTHROID [Concomitant]

REACTIONS (2)
  - DEATH [None]
  - DYSPNOEA [None]
